FAERS Safety Report 9228820 (Version 1)
Quarter: 2013Q2

REPORT INFORMATION
  Report Type: Report from Study
  Country: ES (occurrence: ES)
  Receive Date: 20130412
  Receipt Date: 20130412
  Transmission Date: 20140414
  Serious: Yes (Hospitalization)
  Sender: FDA-Public Use
  Company Number: ES-CELGENEUS-144-21660-13030657

PATIENT
  Age: 49 Year
  Sex: Female

DRUGS (8)
  1. ABRAXANE [Suspect]
     Indication: BREAST CANCER
     Dosage: 150 MILLIGRAM/SQ. METER
     Route: 041
     Dates: start: 20130211, end: 20130225
  2. ABRAXANE [Suspect]
     Dosage: DOSE REDUCED
     Route: 041
     Dates: start: 20130320
  3. ZOMETA [Concomitant]
     Indication: PRODUCT USED FOR UNKNOWN INDICATION
     Route: 065
     Dates: start: 20130218
  4. FORTASEC [Concomitant]
     Indication: PRODUCT USED FOR UNKNOWN INDICATION
     Route: 065
     Dates: start: 20130225
  5. FORTECORTIN [Concomitant]
     Indication: PRODUCT USED FOR UNKNOWN INDICATION
     Route: 065
     Dates: start: 20130116
  6. OXYCONTIN [Concomitant]
     Indication: PRODUCT USED FOR UNKNOWN INDICATION
     Route: 065
     Dates: start: 20130116
  7. DUPHALAC [Concomitant]
     Indication: PRODUCT USED FOR UNKNOWN INDICATION
     Route: 065
     Dates: start: 20130116
  8. PRIMPERAN [Concomitant]
     Indication: PRODUCT USED FOR UNKNOWN INDICATION
     Route: 065
     Dates: start: 20130116

REACTIONS (2)
  - Diarrhoea [Recovered/Resolved]
  - Epistaxis [Recovered/Resolved]
